FAERS Safety Report 5560548-3 (Version None)
Quarter: 2007Q4

REPORT INFORMATION
  Report Type: 
  Country: None (occurrence: None)
  Receive Date: 20071215
  Receipt Date: 20071110
  Transmission Date: 20080405
  Serious: No
  Sender: FDA-Public Use
  Company Number: US-ABBOTT-07P-163-0424471-00

PATIENT
  Sex: Female

DRUGS (9)
  1. HUMIRA [Suspect]
     Indication: RHEUMATOID ARTHRITIS
     Route: 058
     Dates: start: 20071025, end: 20071112
  2. LEFLUNOMIDE [Concomitant]
     Indication: RHEUMATOID ARTHRITIS
     Route: 048
  3. MAXIDEX [Concomitant]
     Indication: FLUID RETENTION
     Dosage: TOTAL DAILY DOSE:  37/25  UNIT DOSE:  37/25
     Route: 048
  4. TIOTROPIUM BROMIDE [Concomitant]
     Indication: CHRONIC OBSTRUCTIVE PULMONARY DISEASE
     Route: 055
  5. TIOTROPIUM BROMIDE [Concomitant]
     Indication: EMPHYSEMA
  6. TRAMEDOL [Concomitant]
     Indication: ARTHRALGIA
     Route: 048
  7. PROPACET 100 [Concomitant]
     Indication: ARTHRALGIA
     Route: 048
  8. CALCIUM WITH VITAMIN D [Concomitant]
     Indication: OSTEOPOROSIS
     Route: 048
  9. MELOXICAM [Concomitant]
     Indication: ARTHRALGIA
     Route: 048

REACTIONS (4)
  - BURNING SENSATION [None]
  - PARAESTHESIA [None]
  - RASH ERYTHEMATOUS [None]
  - SWELLING [None]
